FAERS Safety Report 8607966 (Version 2)
Quarter: 2013Q3

REPORT INFORMATION
  Report Type: Spontaneous
  Country: US (occurrence: US)
  Receive Date: 20120611
  Receipt Date: 20130723
  Transmission Date: 20140515
  Serious: Yes (Disabling, Other)
  Sender: FDA-Public Use
  Company Number: US-ASTRAZENECA-2012SE35399

PATIENT
  Age: 56 Year
  Sex: Female
  Weight: 90.7 kg

DRUGS (6)
  1. NEXIUM [Suspect]
     Indication: GASTROOESOPHAGEAL REFLUX DISEASE
     Dosage: ONCE DAILY
     Route: 048
     Dates: start: 2007, end: 201111
  2. ZANTAC [Concomitant]
  3. TUMS OTC [Concomitant]
     Dosage: AS NEEDED
  4. MICARDIS [Concomitant]
     Indication: BLOOD PRESSURE ABNORMAL
  5. METOPROLOL SUCC [Concomitant]
     Indication: BLOOD PRESSURE ABNORMAL
  6. TYLENOL [Concomitant]
     Indication: MENISCUS INJURY

REACTIONS (12)
  - Benign bone neoplasm [Unknown]
  - Meniscus injury [Unknown]
  - Osteoporosis [Unknown]
  - Tooth demineralisation [Unknown]
  - Foot fracture [Unknown]
  - Forearm fracture [Unknown]
  - Salivary duct obstruction [Unknown]
  - Bone disorder [Unknown]
  - Arthritis [Unknown]
  - Myalgia [Unknown]
  - Diarrhoea [Unknown]
  - Abdominal discomfort [Unknown]
